FAERS Safety Report 14425803 (Version 1)
Quarter: 2018Q1

REPORT INFORMATION
  Report Type: Spontaneous
  Country: CA (occurrence: CA)
  Receive Date: 20180122
  Receipt Date: 20180122
  Transmission Date: 20180509
  Serious: Yes (Life-Threatening)
  Sender: FDA-Public Use
  Company Number: None

PATIENT
  Age: 72 Year
  Sex: Male

DRUGS (4)
  1. HALOPERIDOL. [Suspect]
     Active Substance: HALOPERIDOL
     Indication: CONFUSIONAL STATE
     Route: 048
     Dates: start: 20180112, end: 20180113
  2. HALOPERIDOL. [Suspect]
     Active Substance: HALOPERIDOL
     Indication: MENTAL STATUS CHANGES
     Route: 048
     Dates: start: 20180112, end: 20180113
  3. HALDOL [Concomitant]
     Active Substance: HALOPERIDOL
  4. HALOPERIDOL. [Suspect]
     Active Substance: HALOPERIDOL
     Indication: DYSPHAGIA
     Route: 048
     Dates: start: 20180112, end: 20180113

REACTIONS (1)
  - Electrocardiogram QT prolonged [None]

NARRATIVE: CASE EVENT DATE: 20180114
